FAERS Safety Report 7824314-8 (Version None)
Quarter: 2011Q4

REPORT INFORMATION
  Report Type: 
  Country: None (occurrence: None)
  Receive Date: 20111018
  Receipt Date: 20111018
  Transmission Date: 20120403
  Serious: Yes (Other)
  Sender: FDA-Public Use
  Company Number: None

PATIENT
  Sex: Male
  Weight: 80.7403 kg

DRUGS (1)
  1. VICODIN HP [Suspect]
     Dosage: 10/660MG Q6HRS PO
     Route: 048

REACTIONS (3)
  - NERVOUSNESS [None]
  - CONSTIPATION [None]
  - ANXIETY [None]
